FAERS Safety Report 23560604 (Version 2)
Quarter: 2024Q1

REPORT INFORMATION
  Report Type: Report from Study
  Country: JP (occurrence: JP)
  Receive Date: 20240223
  Receipt Date: 20240227
  Transmission Date: 20240410
  Serious: Yes (Hospitalization)
  Sender: FDA-Public Use
  Company Number: JP-DSJP-DSJ-2024-107731

PATIENT
  Age: 48 Year
  Sex: Female
  Weight: 59.7 kg

DRUGS (13)
  1. ENHERTU [Suspect]
     Active Substance: FAM-TRASTUZUMAB DERUXTECAN-NXKI
     Indication: HER2 positive breast cancer
     Dosage: 5.4 MG/KG, ONCE EVERY 3 WK
     Route: 041
     Dates: start: 20240124, end: 20240124
  2. DEXAMETHASONE [Concomitant]
     Active Substance: DEXAMETHASONE
     Indication: Prophylaxis of nausea and vomiting
     Route: 042
  3. DEXAMETHASONE [Concomitant]
     Active Substance: DEXAMETHASONE
     Indication: Prophylaxis of nausea and vomiting
     Route: 048
  4. OLANZAPINE [Concomitant]
     Active Substance: OLANZAPINE
     Indication: Prophylaxis of nausea and vomiting
     Route: 065
  5. APREPITANT [Concomitant]
     Active Substance: APREPITANT
     Indication: Prophylaxis of nausea and vomiting
     Route: 065
  6. FOSAPREPITANT [Concomitant]
     Active Substance: FOSAPREPITANT
     Indication: Prophylaxis of nausea and vomiting
     Route: 065
  7. FOSNETUPITANT CHLORIDE HYDROCHLORIDE [Concomitant]
     Active Substance: FOSNETUPITANT CHLORIDE HYDROCHLORIDE
     Indication: Prophylaxis of nausea and vomiting
     Route: 065
  8. PALONOSETRON [Concomitant]
     Active Substance: PALONOSETRON
     Route: 065
  9. AZASETRON HYDROCHLORIDE [Concomitant]
     Active Substance: AZASETRON HYDROCHLORIDE
     Indication: Prophylaxis of nausea and vomiting
     Route: 065
  10. INDISETRON HYDROCHLORIDE [Concomitant]
     Active Substance: INDISETRON HYDROCHLORIDE
     Indication: Prophylaxis of nausea and vomiting
     Route: 065
  11. ONDANSETRON [Concomitant]
     Active Substance: ONDANSETRON
     Indication: Prophylaxis of nausea and vomiting
     Route: 065
  12. GRANISETRON [Concomitant]
     Active Substance: GRANISETRON
     Indication: Prophylaxis of nausea and vomiting
     Route: 065
  13. RAMOSETRON HYDROCHLORIDE [Concomitant]
     Active Substance: RAMOSETRON HYDROCHLORIDE
     Indication: Prophylaxis of nausea and vomiting
     Route: 065

REACTIONS (3)
  - White blood cell count decreased [Recovered/Resolved]
  - Neutrophil count decreased [Recovered/Resolved]
  - Platelet count decreased [Recovered/Resolved]

NARRATIVE: CASE EVENT DATE: 20240131
